FAERS Safety Report 8620189 (Version 2)
Quarter: 2013Q1

REPORT INFORMATION
  Report Type: Spontaneous
  Country: US (occurrence: US)
  Receive Date: 20120618
  Receipt Date: 20130122
  Transmission Date: 20140127
  Serious: Yes (Other)
  Sender: FDA-Public Use
  Company Number: US-ASTRAZENECA-2012SE38974

PATIENT
  Age: 51 Year
  Sex: Male

DRUGS (9)
  1. SEROQUEL XR [Suspect]
     Indication: POST-TRAUMATIC STRESS DISORDER
     Route: 048
  2. SEROQUEL XR [Suspect]
     Indication: DEPRESSION
     Route: 048
  3. SEROQUEL XR [Suspect]
     Indication: ANXIETY
     Route: 048
  4. SEROQUEL XR [Suspect]
     Indication: POST-TRAUMATIC STRESS DISORDER
     Route: 048
  5. SEROQUEL XR [Suspect]
     Indication: DEPRESSION
     Route: 048
  6. SEROQUEL XR [Suspect]
     Indication: ANXIETY
     Route: 048
  7. SEROQUEL XR [Suspect]
     Indication: POST-TRAUMATIC STRESS DISORDER
     Dosage: GENERIC
     Route: 048
  8. SEROQUEL XR [Suspect]
     Indication: DEPRESSION
     Dosage: GENERIC
     Route: 048
  9. SEROQUEL XR [Suspect]
     Indication: ANXIETY
     Dosage: GENERIC
     Route: 048

REACTIONS (9)
  - Neoplasm malignant [Unknown]
  - Condition aggravated [Unknown]
  - Initial insomnia [Unknown]
  - Anxiety [Unknown]
  - Depression [Unknown]
  - Feeling abnormal [Unknown]
  - Obsessive-compulsive disorder [Unknown]
  - Dizziness [Unknown]
  - Drug withdrawal syndrome [Unknown]
